FAERS Safety Report 12668219 (Version 2)
Quarter: 2017Q1

REPORT INFORMATION
  Report Type: Spontaneous
  Country: US (occurrence: US)
  Receive Date: 20160819
  Receipt Date: 20170113
  Transmission Date: 20170428
  Serious: No
  Sender: FDA-Public Use
  Company Number: US-MIKART, INC.-1056533

PATIENT
  Age: 55 Year
  Sex: Female
  Weight: 93.64 kg

DRUGS (1)
  1. BUTALBITAL, ACETAMINOPHEN, AND CAFFEINE [Suspect]
     Active Substance: ACETAMINOPHEN\BUTALBITAL\CAFFEINE
     Indication: HEADACHE
     Route: 048
     Dates: start: 20150102, end: 20150109

REACTIONS (7)
  - Peripheral swelling [None]
  - Vision blurred [Not Recovered/Not Resolved]
  - Contusion [None]
  - Vision blurred [Not Recovered/Not Resolved]
  - Rash [None]
  - Miliaria [None]
  - Rash [Not Recovered/Not Resolved]

NARRATIVE: CASE EVENT DATE: 20150105
